FAERS Safety Report 16888727 (Version 4)
Quarter: 2022Q2

REPORT INFORMATION
  Report Type: Report from Study
  Country: US (occurrence: None)
  Receive Date: 20191007
  Receipt Date: 20220517
  Transmission Date: 20220721
  Serious: Yes (Death, Hospitalization, Other)
  Sender: FDA-Public Use
  Company Number: US-ROCHE-2432279

PATIENT
  Age: 69 Year
  Sex: Male

DRUGS (2)
  1. ATEZOLIZUMAB [Suspect]
     Active Substance: ATEZOLIZUMAB
     Indication: Cholangiocarcinoma
     Dosage: EVERY 2 WEEKS
     Route: 041
     Dates: start: 20180705
  2. COBIMETINIB [Suspect]
     Active Substance: COBIMETINIB
     Indication: Cholangiocarcinoma
     Dosage: 21 DAYS ON/7 DAYS OFF
     Route: 048

REACTIONS (2)
  - Neoplasm [Fatal]
  - Hypertension [Unknown]

NARRATIVE: CASE EVENT DATE: 20181008
